FAERS Safety Report 9286034 (Version 1)
Quarter: 2013Q2

REPORT INFORMATION
  Report Type: Spontaneous
  Country: FR (occurrence: FR)
  Receive Date: 20130513
  Receipt Date: 20130513
  Transmission Date: 20140414
  Serious: Yes (Hospitalization)
  Sender: FDA-Public Use
  Company Number: FR-ASTRAZENECA-2013SE31345

PATIENT
  Age: 68 Year
  Sex: Female

DRUGS (7)
  1. INEXIUM [Suspect]
     Route: 048
     Dates: end: 20121221
  2. PLAVIX [Suspect]
     Route: 048
  3. LERCAN [Concomitant]
  4. BIPRETERAX [Concomitant]
  5. LANTUS [Concomitant]
  6. APIDRA [Concomitant]
     Dosage: 26 IU/L
  7. KERLONE [Concomitant]

REACTIONS (2)
  - Cerebral ischaemia [Recovered/Resolved]
  - Cerebral atrophy [Unknown]
